FAERS Safety Report 19484043 (Version 1)
Quarter: 2021Q3

REPORT INFORMATION
  Report Type: Report from Study
  Country: CN (occurrence: CN)
  Receive Date: 20210701
  Receipt Date: 20210701
  Transmission Date: 20211014
  Serious: Yes (Hospitalization)
  Sender: FDA-Public Use
  Company Number: CN-JNJFOC-20210651678

PATIENT
  Age: 73 Year
  Sex: Male
  Weight: 72 kg

DRUGS (6)
  1. MELPHALAN. [Suspect]
     Active Substance: MELPHALAN
     Indication: PLASMA CELL MYELOMA
     Dosage: DAYS 1 ? 4
     Route: 048
     Dates: start: 20180824, end: 20190729
  2. DARATUMUMAB [Suspect]
     Active Substance: DARATUMUMAB
     Dosage: MOST RECENT DOSE RECEIVED (C30D1) ON 27?MAY?2021
     Route: 058
     Dates: start: 20210402
  3. DARATUMUMAB [Suspect]
     Active Substance: DARATUMUMAB
     Indication: PLASMA CELL MYELOMA
     Dosage: DAYS 1, 8, 15, 22, 29 AND 36
     Route: 058
     Dates: start: 20180824
  4. BORTEZOMIB. [Suspect]
     Active Substance: BORTEZOMIB
     Indication: PLASMA CELL MYELOMA
     Dosage: DAYS 1, 4, 8, 11, 22, 25, 29 AND 32
     Route: 058
     Dates: start: 20180824, end: 20190826
  5. PREDNISONE. [Suspect]
     Active Substance: PREDNISONE
     Indication: PLASMA CELL MYELOMA
     Dosage: DAYS 2?4
     Route: 048
     Dates: start: 20180824, end: 20190730
  6. GLIMEPIRIDE. [Concomitant]
     Active Substance: GLIMEPIRIDE
     Route: 048
     Dates: start: 20210528

REACTIONS (1)
  - Sudden hearing loss [Recovered/Resolved]

NARRATIVE: CASE EVENT DATE: 20210604
